FAERS Safety Report 5846924-X (Version None)
Quarter: 2008Q3

REPORT INFORMATION
  Report Type: 
  Country: None (occurrence: None)
  Receive Date: 20080815
  Receipt Date: 20080804
  Transmission Date: 20090109
  Serious: Yes (Other)
  Sender: FDA-Public Use
  Company Number: JP-PFIZER INC-2008053045

PATIENT
  Sex: Male
  Weight: 51 kg

DRUGS (8)
  1. GABAPENTIN [Suspect]
     Indication: MUSCULOSKELETAL PAIN
     Route: 048
     Dates: start: 20080616, end: 20080601
  2. TEGRETOL [Suspect]
     Route: 048
  3. NEUROTROPIN [Concomitant]
     Indication: PAIN
  4. HERBAL PREPARATION [Concomitant]
     Indication: PAIN
     Route: 048
  5. CELECOXIB [Concomitant]
     Indication: PAIN
     Route: 048
  6. TERNELIN [Concomitant]
     Indication: PAIN
     Route: 048
  7. OPALMON [Concomitant]
     Indication: PAIN
     Route: 048
  8. LUVOX [Concomitant]
     Indication: PAIN
     Route: 048

REACTIONS (2)
  - DIZZINESS [None]
  - FALL [None]
